FAERS Safety Report 16797703 (Version 1)
Quarter: 2019Q3

REPORT INFORMATION
  Report Type: Spontaneous
  Country: FR (occurrence: FR)
  Receive Date: 20190912
  Receipt Date: 20190912
  Transmission Date: 20191005
  Serious: Yes (Hospitalization, Other)
  Sender: FDA-Public Use
  Company Number: FR-AUROBINDO-AUR-APL-2019-059260

PATIENT

DRUGS (2)
  1. IRBESARTAN. [Concomitant]
     Active Substance: IRBESARTAN
     Indication: HYPERTENSION
     Dosage: UNK
     Route: 048
  2. NAPROXEN. [Suspect]
     Active Substance: NAPROXEN
     Indication: POST-TRAUMATIC PAIN
     Dosage: INCONNUE
     Route: 048
     Dates: start: 20180525, end: 20180527

REACTIONS (1)
  - Colitis erosive [Recovered/Resolved]

NARRATIVE: CASE EVENT DATE: 20180527
